FAERS Safety Report 17934068 (Version 1)
Quarter: 2020Q2

REPORT INFORMATION
  Report Type: Spontaneous
  Country: US (occurrence: US)
  Receive Date: 20200623
  Receipt Date: 20200623
  Transmission Date: 20200714
  Serious: Yes (Other)
  Sender: FDA-Public Use
  Company Number: US-ASTRAZENECA-2020SE77996

PATIENT
  Sex: Female

DRUGS (2)
  1. FASENRA [Suspect]
     Active Substance: BENRALIZUMAB
     Dosage: 30 UNKNOWN UNKNOWN
     Route: 058
     Dates: start: 201808
  2. FASENRA [Suspect]
     Active Substance: BENRALIZUMAB
     Dosage: 30 UNKNOWN UNKNOWN
     Route: 058
     Dates: start: 202003

REACTIONS (6)
  - Chest discomfort [Unknown]
  - Eosinophilic granulomatosis with polyangiitis [Unknown]
  - Wheezing [Unknown]
  - Product dose omission [Unknown]
  - Hypereosinophilic syndrome [Unknown]
  - Eosinophil count increased [Unknown]
